FAERS Safety Report 8011256-0 (Version None)
Quarter: 2011Q4

REPORT INFORMATION
  Report Type: 
  Country: None (occurrence: None)
  Receive Date: 20111227
  Receipt Date: 20111227
  Transmission Date: 20120403
  Serious: Yes (Other)
  Sender: FDA-Public Use
  Company Number: None

PATIENT
  Age: 19 Year
  Sex: Male
  Weight: 72.574 kg

DRUGS (1)
  1. LARIAM [Suspect]
     Indication: PROPHYLAXIS
     Dosage: 250MG
     Route: 048
     Dates: start: 19921214, end: 19930314

REACTIONS (5)
  - NIGHTMARE [None]
  - HYPERVIGILANCE [None]
  - TINNITUS [None]
  - ANXIETY [None]
  - PARANOIA [None]
